FAERS Safety Report 13189205 (Version 2)
Quarter: 2017Q1

REPORT INFORMATION
  Report Type: Report from Study
  Country: US (occurrence: US)
  Receive Date: 20170206
  Receipt Date: 20170222
  Transmission Date: 20170428
  Serious: Yes (Other)
  Sender: FDA-Public Use
  Company Number: US-AMGEN-USASL2017017024

PATIENT
  Age: 80 Year
  Sex: Male

DRUGS (1)
  1. REPATHA [Suspect]
     Active Substance: EVOLOCUMAB
     Indication: HYPERLIPIDAEMIA
     Dosage: 140 MG, Q2WK
     Route: 065
     Dates: start: 20161022

REACTIONS (5)
  - Pain in extremity [Recovered/Resolved]
  - Pain [Recovered/Resolved]
  - Intervertebral disc disorder [Unknown]
  - Back pain [Recovered/Resolved]
  - Abasia [Recovered/Resolved]
